FAERS Safety Report 16658838 (Version 1)
Quarter: 2019Q3

REPORT INFORMATION
  Report Type: Spontaneous
  Country: US (occurrence: US)
  Receive Date: 20190801
  Receipt Date: 20190801
  Transmission Date: 20191004
  Serious: No
  Sender: FDA-Public Use
  Company Number: US-ABBVIE-19P-163-2865511-00

PATIENT
  Sex: Female

DRUGS (3)
  1. ORILISSA [Suspect]
     Active Substance: ELAGOLIX SODIUM
     Dosage: 150 MG DAILY
     Route: 048
     Dates: start: 20190515
  2. NORETHINDRONE. [Concomitant]
     Active Substance: NORETHINDRONE
     Indication: ENDOMETRIOSIS
     Dosage: 1 TABLET TWICE A DAY
  3. ORILISSA [Suspect]
     Active Substance: ELAGOLIX SODIUM
     Indication: ENDOMETRIOSIS
     Route: 048

REACTIONS (5)
  - Fatigue [Recovered/Resolved]
  - Myalgia [Recovered/Resolved]
  - Alanine aminotransferase increased [Not Recovered/Not Resolved]
  - Endometriosis [Not Recovered/Not Resolved]
  - Pain in extremity [Recovered/Resolved]
